FAERS Safety Report 10344696 (Version 1)
Quarter: 2014Q3

REPORT INFORMATION
  Report Type: Spontaneous
  Country: GB (occurrence: None)
  Receive Date: 20140724
  Receipt Date: 20140724
  Transmission Date: 20150326
  Serious: Yes (Other)
  Sender: FDA-Public Use
  Company Number: AUR-APL-2014-07839

PATIENT
  Age: 63 Year
  Sex: Male
  Weight: 125 kg

DRUGS (13)
  1. GABAPENTIN. [Suspect]
     Active Substance: GABAPENTIN
     Indication: PRODUCT USED FOR UNKNOWN INDICATION
     Dates: start: 20140610
  2. PARACETAMOL [Concomitant]
     Active Substance: ACETAMINOPHEN
  3. VICTOZA [Concomitant]
     Active Substance: LIRAGLUTIDE
  4. METFORMIN [Concomitant]
     Active Substance: METFORMIN HYDROCHLORIDE
  5. ORLISTAT [Concomitant]
     Active Substance: ORLISTAT
  6. PIROXICAM. [Concomitant]
     Active Substance: PIROXICAM
  7. RAMIPRIL. [Concomitant]
     Active Substance: RAMIPRIL
  8. GLICLAZIDE [Concomitant]
     Active Substance: GLICLAZIDE
  9. NYSTAN (NYSTATIN) [Concomitant]
  10. MELOXICAM. [Concomitant]
     Active Substance: MELOXICAM
  11. QUININE [Concomitant]
     Active Substance: QUININE
  12. SIMVASTATIN. [Concomitant]
     Active Substance: SIMVASTATIN
  13. TRAMADOL [Concomitant]
     Active Substance: TRAMADOL

REACTIONS (5)
  - Cough [None]
  - Mouth swelling [None]
  - Lip swelling [None]
  - Oropharyngeal pain [None]
  - Oral candidiasis [None]

NARRATIVE: CASE EVENT DATE: 20140701
